FAERS Safety Report 4404125-6 (Version None)
Quarter: 2004Q3

REPORT INFORMATION
  Report Type: 
  Country: None (occurrence: None)
  Receive Date: 20040721
  Receipt Date: 20040721
  Transmission Date: 20050211
  Serious: Yes (Other)
  Sender: FDA-Public Use
  Company Number: None

PATIENT
  Age: 32 Year
  Sex: Female
  Weight: 104.3273 kg

DRUGS (3)
  1. CELEXA [Suspect]
     Indication: BIPOLAR DISORDER
     Dosage: 40 MG DAILY ORAL
     Route: 048
     Dates: start: 20040326, end: 20040506
  2. CELEXA [Suspect]
     Indication: DEPRESSION
     Dosage: 40 MG DAILY ORAL
     Route: 048
     Dates: start: 20040326, end: 20040506
  3. LEXAPRO [Suspect]
     Indication: MAJOR DEPRESSION
     Dosage: 10 MG DAILY ORAL
     Route: 048
     Dates: start: 20040506, end: 20040720

REACTIONS (6)
  - ACTIVITIES OF DAILY LIVING IMPAIRED [None]
  - BACK PAIN [None]
  - FATIGUE [None]
  - HEADACHE [None]
  - PHOTOSENSITIVITY REACTION [None]
  - WEIGHT INCREASED [None]
